FAERS Safety Report 4963816-9 (Version None)
Quarter: 2006Q1

REPORT INFORMATION
  Report Type: 
  Country: None (occurrence: None)
  Receive Date: 20060330
  Receipt Date: 20060323
  Transmission Date: 20060701
  Serious: Yes (Other)
  Sender: FDA-Public Use
  Company Number: 2006028611

PATIENT
  Age: 58 Year
  Sex: Female
  Weight: 56.6996 kg

DRUGS (3)
  1. XANAX [Suspect]
     Indication: ANXIETY
     Dosage: 1 MG (0.5 MG, 2 IN 1 D), ORAL
     Route: 048
  2. FOSAMAX (ALENDRONAE SODIUM) [Concomitant]
  3. PROVENTIL [Concomitant]

REACTIONS (3)
  - DRUG EFFECT DECREASED [None]
  - FEELING ABNORMAL [None]
  - THERAPEUTIC RESPONSE UNEXPECTED WITH DRUG SUBSTITUTION [None]
